FAERS Safety Report 4775447-4 (Version None)
Quarter: 2005Q3

REPORT INFORMATION
  Report Type: 
  Country: None (occurrence: None)
  Receive Date: 20050921
  Receipt Date: 20050921
  Transmission Date: 20060218
  Serious: Yes (Death, Other)
  Sender: FDA-Public Use
  Company Number: None

PATIENT
  Age: 15 Year
  Sex: Male
  Weight: 45.3597 kg

DRUGS (1)
  1. ZOLOFT [Suspect]
     Dosage: 150 MG PO
     Route: 048

REACTIONS (1)
  - COMPLETED SUICIDE [None]
